FAERS Safety Report 6113142-X (Version None)
Quarter: 2009Q1

REPORT INFORMATION
  Report Type: 
  Country: None (occurrence: None)
  Receive Date: 20090312
  Receipt Date: 20090306
  Transmission Date: 20090719
  Serious: Yes (Other)
  Sender: FDA-Public Use
  Company Number: DE-AVENTIS-200613715DE

PATIENT
  Age: 57 Year
  Sex: Male
  Weight: 92 kg

DRUGS (6)
  1. TAXOTERE [Suspect]
     Route: 041
     Dates: start: 20060522, end: 20060703
  2. TAXOTERE [Suspect]
     Route: 041
     Dates: start: 20060720, end: 20060720
  3. TAXOTERE [Suspect]
     Route: 041
     Dates: start: 20060720, end: 20061113
  4. DEXAMETHASONE TAB [Concomitant]
     Dosage: DOSE: NOT REPORTED
  5. PITUITARY AND HYPOTHALAMIC HORMONES [Concomitant]
     Dosage: DOSE: NOT REPORTED
  6. ANTIEMETICS AND ANTINAUSEANTS [Concomitant]
     Dosage: DOSE: NOT REPORTED

REACTIONS (1)
  - STRABISMUS [None]
